FAERS Safety Report 22377801 (Version 1)
Quarter: 2023Q2

REPORT INFORMATION
  Report Type: Spontaneous
  Country: BR (occurrence: BR)
  Receive Date: 20230529
  Receipt Date: 20230529
  Transmission Date: 20230722
  Serious: Yes (Life-Threatening, Hospitalization, Disabling, Other)
  Sender: FDA-Public Use
  Company Number: BR-BoehringerIngelheim-2023-BI-240343

PATIENT
  Age: 62 Year
  Sex: Female

DRUGS (6)
  1. CLONIDINE [Suspect]
     Active Substance: CLONIDINE
     Indication: Hypertension
     Route: 048
  2. CLONIDINE [Suspect]
     Active Substance: CLONIDINE
     Route: 048
  3. Benzetacil: Benzathine Benzylpenicillin [Concomitant]
     Indication: Rheumatic fever
     Dosage: 1DF
     Dates: start: 1973
  4. Gardenal: Phenobarbital [Concomitant]
     Indication: Epilepsy
     Dosage: 3 DF
     Dates: start: 1962
  5. LIMBITROL [Concomitant]
     Active Substance: AMITRIPTYLINE\CHLORDIAZEPOXIDE
     Indication: Product used for unknown indication
     Dosage: 3 DF
     Dates: start: 2011
  6. Lamotrigine 50 [Concomitant]
     Indication: Product used for unknown indication
     Dosage: 3 DF
     Dates: start: 202212

REACTIONS (7)
  - Coma [Recovered/Resolved]
  - Balance disorder [Not Recovered/Not Resolved]
  - Speech disorder [Recovering/Resolving]
  - Gait inability [Recovered/Resolved]
  - Cardiac arrest [Recovered/Resolved]
  - Blood pressure fluctuation [Not Recovered/Not Resolved]
  - Drug ineffective [Not Recovered/Not Resolved]
